FAERS Safety Report 15736650 (Version 1)
Quarter: 2018Q4

REPORT INFORMATION
  Report Type: Spontaneous
  Country: US (occurrence: US)
  Receive Date: 20181204
  Receipt Date: 20181204
  Transmission Date: 20190205
  Serious: Yes (Hospitalization)
  Sender: FDA-Public Use
  Company Number: None

PATIENT
  Sex: Male

DRUGS (10)
  1. PARI LC [Concomitant]
  2. NUTREN [Concomitant]
  3. CYPROHEPTADINE. [Concomitant]
     Active Substance: CYPROHEPTADINE
  4. MEGESTROL ACETATE. [Concomitant]
     Active Substance: MEGESTROL ACETATE
  5. ALBUTEROL. [Concomitant]
     Active Substance: ALBUTEROL
  6. PULMOZYME [Suspect]
     Active Substance: DORNASE ALFA
     Indication: CYSTIC FIBROSIS
     Route: 055
     Dates: start: 20131218
  7. CREON [Concomitant]
     Active Substance: PANCRELIPASE AMYLASE\PANCRELIPASE LIPASE\PANCRELIPASE PROTEASE
  8. CAYSTON [Concomitant]
     Active Substance: AZTREONAM
  9. TOBRAMYCIN. [Concomitant]
     Active Substance: TOBRAMYCIN
  10. SODIUM CHLORIDE. [Concomitant]
     Active Substance: SODIUM CHLORIDE

REACTIONS (2)
  - Cystic fibrosis [None]
  - Haemoptysis [None]
